FAERS Safety Report 10067112 (Version 13)
Quarter: 2014Q4

REPORT INFORMATION
  Report Type: Spontaneous
  Country: BE (occurrence: BE)
  Receive Date: 20140409
  Receipt Date: 20141111
  Transmission Date: 20150528
  Serious: Yes (Other)
  Sender: FDA-Public Use
  Company Number: BE-MERCK-1312BEL005940

PATIENT
  Age: 56 Year
  Sex: Male
  Weight: 84 kg

DRUGS (16)
  1. PEGINTRON [Suspect]
     Active Substance: PEGINTERFERON ALFA-2B
     Indication: HEPATITIS C
     Dosage: CONCENTRATION 120MCG: DOSE 0.4ML, QW
     Route: 058
     Dates: start: 20140218, end: 2014
  2. RIBAVIRIN. [Suspect]
     Active Substance: RIBAVIRIN
     Dosage: 1200 MG DAILY
     Route: 048
     Dates: start: 20140727
  3. PEGINTRON [Suspect]
     Active Substance: PEGINTERFERON ALFA-2B
     Dosage: CONCENTRATION 120MCG: DOSE 0.5ML, QW
     Route: 058
     Dates: start: 20131126, end: 20131216
  4. VICTRELIS [Suspect]
     Active Substance: BOCEPREVIR
     Dosage: TOTAL DAILY DOSE: 2400 MG, 800 MG TID
     Route: 048
     Dates: start: 20131225, end: 20140214
  5. RIBAVIRIN. [Suspect]
     Active Substance: RIBAVIRIN
     Indication: HEPATITIS C
     Dosage: UNK, QD
     Route: 048
     Dates: start: 20131126, end: 20140718
  6. VICTRELIS [Suspect]
     Active Substance: BOCEPREVIR
     Indication: HEPATITIS C
     Dosage: TOTAL DAILY DOSE: 2400 MG, 800 MG TID
     Route: 048
     Dates: start: 20140216, end: 20140718
  7. CYMBALTA [Concomitant]
     Active Substance: DULOXETINE HYDROCHLORIDE
     Dosage: 1 DF, QOD; 1 TABLET EVERY OTHER DAY
     Route: 048
  8. RANITIDINE [Concomitant]
     Active Substance: RANITIDINE\RANITIDINE HYDROCHLORIDE
     Indication: DYSPEPSIA
     Dosage: TOTAL DAILY DOSE 450 MG
     Route: 048
     Dates: start: 20140207, end: 20140207
  9. PEGINTRON [Suspect]
     Active Substance: PEGINTERFERON ALFA-2B
     Dosage: CONCENTRATION 120MCG: DOSE 0.5ML, QW
     Route: 058
     Dates: start: 20140727
  10. PEGINTRON [Suspect]
     Active Substance: PEGINTERFERON ALFA-2B
     Dosage: MIGHT NOT HAVE HIS FULL DOSE
  11. BISOPROLOL [Concomitant]
     Active Substance: BISOPROLOL
     Dosage: 2.5 MG DAILY
     Route: 048
  12. VICTRELIS [Suspect]
     Active Substance: BOCEPREVIR
     Dosage: 2400 MG DAILY
     Route: 048
     Dates: start: 20140727, end: 20141023
  13. RANITIDINE [Concomitant]
     Active Substance: RANITIDINE\RANITIDINE HYDROCHLORIDE
     Indication: GASTRIC DISORDER
     Dosage: TOTAL DAILY DOSE 600 MG
     Route: 048
     Dates: start: 20140122, end: 20140206
  14. PEGINTRON [Suspect]
     Active Substance: PEGINTERFERON ALFA-2B
     Dosage: CONCENTRATION 120MCG: DOSE 0.3ML, QW
     Route: 058
     Dates: start: 20131217, end: 2014
  15. PEGINTRON [Suspect]
     Active Substance: PEGINTERFERON ALFA-2B
     Dosage: CONCENTRATION 120MCG: DOSE 0.5ML, QW
     Route: 058
     Dates: start: 20140515, end: 20140718
  16. RANITIDINE [Concomitant]
     Active Substance: RANITIDINE\RANITIDINE HYDROCHLORIDE
     Indication: DYSGEUSIA
     Dosage: TOTAL DAILY DOSE 300 MG
     Route: 048
     Dates: start: 20140208

REACTIONS (39)
  - Tachycardia [Unknown]
  - Anxiety [Unknown]
  - Hypertension [Unknown]
  - Product quality issue [Unknown]
  - Inappropriate schedule of drug administration [Unknown]
  - Hypersomnia [Recovering/Resolving]
  - Injection site erythema [Recovered/Resolved]
  - Tooth infection [Unknown]
  - Drug dose omission [Unknown]
  - Oedema peripheral [Not Recovered/Not Resolved]
  - Feeling abnormal [Unknown]
  - Thrombocytopenia [Unknown]
  - Pain in extremity [Recovering/Resolving]
  - Underdose [Unknown]
  - Sleep disorder [Not Recovered/Not Resolved]
  - Inflammation [Unknown]
  - Peripheral swelling [Not Recovered/Not Resolved]
  - Oral mucosal erythema [Recovering/Resolving]
  - Erythema [Unknown]
  - Pain in extremity [Recovering/Resolving]
  - Pain in extremity [Not Recovered/Not Resolved]
  - Dysgeusia [Recovering/Resolving]
  - Headache [Recovering/Resolving]
  - Otitis media [Unknown]
  - Heart rate abnormal [Unknown]
  - Abdominal pain upper [Recovering/Resolving]
  - Loss of consciousness [Unknown]
  - Vein disorder [Unknown]
  - Movement disorder [Unknown]
  - Dyspepsia [Unknown]
  - Cardiovascular disorder [Unknown]
  - Malaise [Not Recovered/Not Resolved]
  - Fatigue [Not Recovered/Not Resolved]
  - Alopecia [Recovered/Resolved]
  - Injection site erythema [Recovering/Resolving]
  - Pyrexia [Recovered/Resolved]
  - Oropharyngeal plaque [Recovering/Resolving]
  - Drug dose omission [Unknown]
  - Back disorder [Unknown]

NARRATIVE: CASE EVENT DATE: 201312
